FAERS Safety Report 4440051-4 (Version None)
Quarter: 2004Q3

REPORT INFORMATION
  Report Type: 
  Country: None (occurrence: None)
  Receive Date: 20040902
  Receipt Date: 20040831
  Transmission Date: 20050211
  Serious: Yes (Other)
  Sender: FDA-Public Use
  Company Number: US-GLAXOSMITHKLINE-A0524057A

PATIENT
  Age: 52 Year
  Sex: Female

DRUGS (1)
  1. ADVAIR DISKUS 100/50 [Suspect]
     Dosage: 1PUFF TWICE PER DAY
     Route: 055

REACTIONS (5)
  - DYSPHONIA [None]
  - INFLUENZA [None]
  - LARYNGEAL OEDEMA [None]
  - ORAL CANDIDIASIS [None]
  - PHARYNGEAL OEDEMA [None]
